FAERS Safety Report 15739315 (Version 1)
Quarter: 2018Q4

REPORT INFORMATION
  Report Type: Spontaneous
  Country: CN (occurrence: CN)
  Receive Date: 20181219
  Receipt Date: 20181219
  Transmission Date: 20190205
  Serious: Yes (Other)
  Sender: FDA-Public Use
  Company Number: CN-ROCHE-2232700

PATIENT
  Age: 55 Year
  Sex: Female

DRUGS (7)
  1. POLYENE PHOSPHATIDYLCHOLINE [Concomitant]
     Active Substance: PHOSPHOLIPID
     Route: 042
  2. MAGNESIUM ISOGLYCYRRHIZINATE [Concomitant]
     Active Substance: MAGNESIUM ISOGLYCYRRHIZINATE
     Route: 065
  3. HERCEPTIN [Suspect]
     Active Substance: TRASTUZUMAB
     Indication: BREAST CANCER
     Dosage: DOSE: 520 MG
     Route: 042
  4. GLUTATHIONE [Concomitant]
     Active Substance: GLUTATHIONE
     Route: 042
  5. BICYCLOL [Concomitant]
     Active Substance: BICYCLOL
     Route: 065
  6. GLUCURONOLACTONE [Concomitant]
     Active Substance: GLUCUROLACTONE
     Route: 042
  7. VITAMIN C [Concomitant]
     Active Substance: ASCORBIC ACID
     Route: 042

REACTIONS (1)
  - Hepatotoxicity [Unknown]
